FAERS Safety Report 10273704 (Version 1)
Quarter: 2014Q3

REPORT INFORMATION
  Report Type: Spontaneous
  Country: NO (occurrence: NO)
  Receive Date: 20140702
  Receipt Date: 20140702
  Transmission Date: 20150326
  Serious: Yes (Other)
  Sender: FDA-Public Use
  Company Number: NO-AMGEN INC.-NORSP2014048296

PATIENT
  Age: 3 Year
  Sex: Male
  Weight: 10.4 kg

DRUGS (1)
  1. ARANESP [Suspect]
     Active Substance: DARBEPOETIN ALFA
     Indication: PRODUCT USED FOR UNKNOWN INDICATION
     Dosage: 40 MUG, QWK
     Route: 065
     Dates: start: 201401

REACTIONS (4)
  - Haemoglobin abnormal [Unknown]
  - Infection [Not Recovered/Not Resolved]
  - Liver disorder [Unknown]
  - Overdose [Unknown]
